FAERS Safety Report 4823253-4 (Version None)
Quarter: 2005Q4

REPORT INFORMATION
  Report Type: 
  Country: None (occurrence: None)
  Receive Date: 20051108
  Receipt Date: 20051108
  Transmission Date: 20060501
  Serious: Yes (Life-Threatening)
  Sender: FDA-Public Use
  Company Number: None

PATIENT
  Age: 21 Year
  Sex: Male

DRUGS (1)
  1. BENZOCAINE -HURRICAINE- SPRAY    20% [Suspect]
     Indication: PHARYNGOLARYNGEAL PAIN
     Dosage: 1 SPRAY    Q 6 H    PO
     Route: 048
     Dates: start: 20050929, end: 20051008

REACTIONS (4)
  - DRUG DOSE OMISSION [None]
  - METHAEMOGLOBINAEMIA [None]
  - OXYGEN SATURATION DECREASED [None]
  - PO2 ABNORMAL [None]
